FAERS Safety Report 12555790 (Version 1)
Quarter: 2016Q3

REPORT INFORMATION
  Report Type: Report from Study
  Country: US (occurrence: US)
  Receive Date: 20160714
  Receipt Date: 20160714
  Transmission Date: 20161109
  Serious: Yes (Hospitalization, Other)
  Sender: FDA-Public Use
  Company Number: US-BRISTOL-MYERS SQUIBB COMPANY-BMS-2016-057017

PATIENT
  Age: 63 Year
  Sex: Male
  Weight: 97.5 kg

DRUGS (4)
  1. LENALIDOMIDE [Suspect]
     Active Substance: LENALIDOMIDE
     Indication: PLASMA CELL MYELOMA
     Dosage: 1950 MG, UNK
     Route: 065
     Dates: start: 20160108, end: 20160701
  2. DEXAMETHASONE. [Suspect]
     Active Substance: DEXAMETHASONE
     Indication: PLASMA CELL MYELOMA
     Dosage: 1950 MG, UNK
     Route: 065
     Dates: start: 20160108, end: 20160701
  3. ELOTUZUMAB. [Suspect]
     Active Substance: ELOTUZUMAB
     Indication: PLASMA CELL MYELOMA
     Dosage: 1950 MG, UNK
     Route: 065
     Dates: start: 20160108, end: 20160701
  4. BORTEZOMIB [Suspect]
     Active Substance: BORTEZOMIB
     Indication: PLASMA CELL MYELOMA
     Dosage: 1950 MG, UNK
     Route: 065
     Dates: start: 20160108, end: 20160701

REACTIONS (3)
  - Hypotension [Recovering/Resolving]
  - Supraventricular tachycardia [Recovering/Resolving]
  - Troponin I increased [Recovering/Resolving]

NARRATIVE: CASE EVENT DATE: 20160701
